FAERS Safety Report 8909565 (Version 1)
Quarter: 2012Q4

REPORT INFORMATION
  Report Type: Spontaneous
  Country: US (occurrence: None)
  Receive Date: 20121107
  Receipt Date: 20121107
  Transmission Date: 20130627
  Serious: Yes (Life-Threatening, Hospitalization, Other)
  Sender: FDA-Public Use
  Company Number: 2012P1061287

PATIENT
  Age: 42 Year
  Sex: Male

DRUGS (11)
  1. LITHIUM [Suspect]
     Indication: COGNITIVE IMPAIRMENT
     Dosage: 600  MG;BID;
     Dates: start: 1995
  2. LITHIUM [Suspect]
     Indication: AFFECT LABILITY
     Dosage: 600  MG;BID;
     Dates: start: 1995
  3. METHIMAZOLE [Concomitant]
  4. PREVACID [Concomitant]
  5. PERCOCET [Concomitant]
  6. SEROQUEL [Concomitant]
  7. LORAZEPAM [Concomitant]
  8. DILANTIN [Concomitant]
  9. MIRAPEX [Concomitant]
  10. ZOLOFT [Concomitant]
  11. COLACE [Concomitant]

REACTIONS (8)
  - Thyroid operation [None]
  - Procedural complication [None]
  - Convulsion [None]
  - Respiratory distress [None]
  - Fatigue [None]
  - Tracheal deviation [None]
  - Goitre [None]
  - Tracheal stenosis [None]
